FAERS Safety Report 9255246 (Version 1)
Quarter: 2013Q2

REPORT INFORMATION
  Report Type: Report from Study
  Country: ES (occurrence: ES)
  Receive Date: 20130425
  Receipt Date: 20130425
  Transmission Date: 20140414
  Serious: Yes (Hospitalization)
  Sender: FDA-Public Use
  Company Number: ES-BAYER-2013-047153

PATIENT
  Age: 63 Year
  Sex: Male

DRUGS (6)
  1. ADALAT OROS 60 MG, COMPRIMIDOS DE LIBERACION PROLONGADA, 28 COMPRI [Suspect]
     Indication: HYPERTENSION
     Dosage: UNK
     Route: 048
     Dates: start: 20090420, end: 20100110
  2. FORTZAAR [Interacting]
     Indication: HYPERTENSION
     Route: 048
     Dates: start: 20080904, end: 20100110
  3. CARDURAN [Interacting]
     Indication: HYPERTENSION
     Route: 048
     Dates: start: 20080904, end: 20100110
  4. IBUPROFEN [Interacting]
     Route: 048
     Dates: end: 20100110
  5. PARACETAMOL [Concomitant]
     Route: 048
     Dates: start: 20100107, end: 20100110
  6. FLUTOX [Concomitant]
     Indication: COUGH
     Route: 048
     Dates: start: 20100107, end: 20100110

REACTIONS (1)
  - Renal failure acute [Recovered/Resolved]
